FAERS Safety Report 25715406 (Version 1)
Quarter: 2025Q3

REPORT INFORMATION
  Report Type: Spontaneous
  Country: EU (occurrence: EU)
  Receive Date: 20250822
  Receipt Date: 20250822
  Transmission Date: 20251020
  Serious: Yes (Hospitalization)
  Sender: TEVA
  Company Number: None

PATIENT
  Age: 55 Year
  Sex: Male

DRUGS (1)
  1. GABAPENTIN [Suspect]
     Active Substance: GABAPENTIN
     Indication: Neuralgia
     Dosage: 600MG X2/DAY
     Route: 048
     Dates: end: 20250721

REACTIONS (1)
  - Urinary incontinence [Recovered/Resolved]

NARRATIVE: CASE EVENT DATE: 20250710
